FAERS Safety Report 5512007-1 (Version None)
Quarter: 2007Q4

REPORT INFORMATION
  Report Type: 
  Country: None (occurrence: None)
  Receive Date: 20071109
  Receipt Date: 20071102
  Transmission Date: 20080405
  Serious: Yes (Other)
  Sender: FDA-Public Use
  Company Number: CA-PFIZER INC-2007093004

PATIENT
  Sex: Male

DRUGS (2)
  1. FRAGMIN [Suspect]
     Route: 065
  2. HEPARIN [Concomitant]

REACTIONS (1)
  - THROMBOSIS [None]
